FAERS Safety Report 16960550 (Version 2)
Quarter: 2020Q1

REPORT INFORMATION
  Report Type: Spontaneous
  Country: US (occurrence: US)
  Receive Date: 20191025
  Receipt Date: 20200224
  Transmission Date: 20200409
  Serious: Yes (Death)
  Sender: FDA-Public Use
  Company Number: US-ASTRAZENECA-2019SF50580

PATIENT
  Age: 19780 Day
  Sex: Female

DRUGS (40)
  1. ESTRADIOL. [Concomitant]
     Active Substance: ESTRADIOL
  2. POLYETHYLENE GLYCOL [Concomitant]
     Active Substance: POLYETHYLENE GLYCOLS
  3. LEVEMIR [Concomitant]
     Active Substance: INSULIN DETEMIR
  4. BYDUREON [Suspect]
     Active Substance: EXENATIDE
     Indication: TYPE 2 DIABETES MELLITUS
     Dosage: 2 MG PEN INJ
     Route: 058
     Dates: start: 20160930
  5. METFORMIN [Concomitant]
     Active Substance: METFORMIN HYDROCHLORIDE
  6. NOVOLOG [Concomitant]
     Active Substance: INSULIN ASPART
  7. SENNA [Concomitant]
     Active Substance: SENNA LEAF\SENNOSIDES\SENNOSIDES A AND B
  8. CHERATUSSIN [Concomitant]
     Active Substance: AMMONIUM CHLORIDE\DEXTROMETHORPHAN\SODIUM CITRATE
  9. AMOXICILLIN. [Concomitant]
     Active Substance: AMOXICILLIN
  10. VICTOZA [Suspect]
     Active Substance: LIRAGLUTIDE
     Indication: TYPE 2 DIABETES MELLITUS
     Dosage: 18MG/3ML INJ
     Route: 065
     Dates: start: 20161226
  11. LEVAQUIN [Concomitant]
     Active Substance: LEVOFLOXACIN
  12. ESOMEPRAZOLE MAGNESIUM. [Concomitant]
     Active Substance: ESOMEPRAZOLE MAGNESIUM
  13. DICLOFENAC [Concomitant]
     Active Substance: DICLOFENAC
  14. GLYBURIDE. [Concomitant]
     Active Substance: GLYBURIDE
  15. HYDROCODONE BITARTRATE AND ACETAMINOPHEN [Concomitant]
     Active Substance: ACETAMINOPHEN\HYDROCODONE BITARTRATE
  16. VIOKACE [Concomitant]
     Active Substance: PANCRELIPASE AMYLASE\PANCRELIPASE LIPASE\PANCRELIPASE PROTEASE
  17. BYDUREON [Suspect]
     Active Substance: EXENATIDE
     Indication: TYPE 2 DIABETES MELLITUS
     Dosage: 2 MG PEN INJ
     Route: 058
     Dates: start: 20160412
  18. VICTOZA [Suspect]
     Active Substance: LIRAGLUTIDE
     Indication: TYPE 2 DIABETES MELLITUS
     Dosage: 1.8MG/3ML INJ ONCE A WEEK AS INSTRUCTED
     Route: 058
     Dates: start: 20161024, end: 201701
  19. XARELTO [Concomitant]
     Active Substance: RIVAROXABAN
  20. VICTOZA [Suspect]
     Active Substance: LIRAGLUTIDE
     Indication: TYPE 2 DIABETES MELLITUS
     Dosage: 18MG/3ML INJ
     Route: 065
     Dates: start: 20161203
  21. MORPHINE [Concomitant]
     Active Substance: MORPHINE
  22. ATORVASTATIN [Concomitant]
     Active Substance: ATORVASTATIN
  23. TRESIBA [Concomitant]
     Active Substance: INSULIN DEGLUDEC
  24. LIRAGLUTIDE [Concomitant]
     Active Substance: LIRAGLUTIDE
  25. FERGON [Concomitant]
     Active Substance: FERROUS GLUCONATE
  26. BYDUREON [Suspect]
     Active Substance: EXENATIDE
     Indication: TYPE 2 DIABETES MELLITUS
     Dosage: 2 MG PEN INJ
     Route: 058
     Dates: start: 20160610
  27. ZOFRAN [Concomitant]
     Active Substance: ONDANSETRON HYDROCHLORIDE
  28. PROGESTERONE MICRONIZED [Concomitant]
  29. ONDANSETRON [Concomitant]
     Active Substance: ONDANSETRON
  30. LIPITOR [Concomitant]
     Active Substance: ATORVASTATIN CALCIUM
  31. CLINDAMYCIN. [Concomitant]
     Active Substance: CLINDAMYCIN
  32. SPIRONOLACTONE. [Concomitant]
     Active Substance: SPIRONOLACTONE
  33. FUROSEMIDE. [Concomitant]
     Active Substance: FUROSEMIDE
  34. VICTOZA [Suspect]
     Active Substance: LIRAGLUTIDE
     Indication: TYPE 2 DIABETES MELLITUS
     Dosage: 3-PAK - 0.6 MG/0.1 ML (18 MG/3 ML)
     Route: 065
  35. LISINOPRIL. [Concomitant]
     Active Substance: LISINOPRIL
  36. BYDUREON [Suspect]
     Active Substance: EXENATIDE
     Indication: TYPE 2 DIABETES MELLITUS
     Dosage: 2 MG PEN INJ
     Route: 058
     Dates: start: 20160412, end: 201610
  37. BYDUREON [Suspect]
     Active Substance: EXENATIDE
     Indication: TYPE 2 DIABETES MELLITUS
     Dosage: 2 MG PEN INJ
     Route: 058
     Dates: start: 20160511
  38. PERCOCET [Concomitant]
     Active Substance: ACETAMINOPHEN\OXYCODONE HYDROCHLORIDE
  39. OXYCODONE [Concomitant]
     Active Substance: OXYCODONE
  40. ZENPEP [Concomitant]
     Active Substance: PANCRELIPASE AMYLASE\PANCRELIPASE LIPASE\PANCRELIPASE PROTEASE

REACTIONS (1)
  - Pancreatic carcinoma metastatic [Fatal]

NARRATIVE: CASE EVENT DATE: 20170126
